FAERS Safety Report 12490990 (Version 2)
Quarter: 2016Q2

REPORT INFORMATION
  Report Type: Spontaneous
  Country: US (occurrence: US)
  Receive Date: 20160623
  Receipt Date: 20160628
  Transmission Date: 20160815
  Serious: Yes (Other)
  Sender: FDA-Public Use
  Company Number: US-JNJFOC-20160614814

PATIENT

DRUGS (2)
  1. FAMOTIDINE. [Suspect]
     Active Substance: FAMOTIDINE
     Route: 065
  2. FAMOTIDINE. [Suspect]
     Active Substance: FAMOTIDINE
     Indication: GASTROINTESTINAL DISORDER
     Dosage: 40 MG DAILY, FOR 48 WEEKS
     Route: 065

REACTIONS (8)
  - Fracture [Unknown]
  - Diarrhoea [Unknown]
  - Epigastric discomfort [Unknown]
  - Haematemesis [Unknown]
  - Acute myocardial infarction [Unknown]
  - Melaena [Unknown]
  - Cerebrovascular accident [Unknown]
  - Pneumonia [Unknown]
